FAERS Safety Report 9691985 (Version 3)
Quarter: 2014Q1

REPORT INFORMATION
  Report Type: Spontaneous
  Country: IT (occurrence: IT)
  Receive Date: 20131118
  Receipt Date: 20140107
  Transmission Date: 20141002
  Serious: Yes (Hospitalization, Other)
  Sender: FDA-Public Use
  Company Number: IT-009507513-1311ITA004284

PATIENT
  Age: 49 Year
  Sex: Female
  Weight: 80 kg

DRUGS (8)
  1. REBETOL [Suspect]
     Indication: HEPATITIS CHRONIC ACTIVE
     Dosage: 800 MG, QD
     Route: 048
     Dates: start: 20130530, end: 20131104
  2. REBETOL [Suspect]
     Indication: HEPATITIS C
  3. VICTRELIS [Suspect]
     Indication: HEPATITIS CHRONIC ACTIVE
     Dosage: TOTAL DAILY DOSE: 2400 MG
     Route: 048
     Dates: start: 20130706, end: 20131104
  4. VICTRELIS [Suspect]
     Indication: HEPATITIS C
  5. PEGASYS [Suspect]
     Indication: HEPATITIS CHRONIC ACTIVE
     Dosage: 180 MCG SUBCUTANEOUS ,WEEKLY
     Route: 058
     Dates: start: 20130530, end: 20131104
  6. PEGASYS [Suspect]
     Indication: HEPATITIS C
  7. SANDIMMUN [Concomitant]
     Indication: PSORIASIS
     Dosage: 100 MG ORAL
     Route: 048
     Dates: start: 20130524, end: 20131104
  8. EPREX [Concomitant]
     Indication: ANAEMIA
     Dosage: 40000 IU ,WEEKLY
     Route: 058
     Dates: start: 20130904, end: 20131105

REACTIONS (2)
  - Pancreatitis acute [Not Recovered/Not Resolved]
  - Anaemia [Unknown]
